FAERS Safety Report 20834946 (Version 1)
Quarter: 2022Q2

REPORT INFORMATION
  Report Type: Spontaneous
  Country: US (occurrence: US)
  Receive Date: 20220516
  Receipt Date: 20220516
  Transmission Date: 20220721
  Serious: No
  Sender: FDA-Public Use
  Company Number: US-PFIZER INC-202200667951

PATIENT
  Age: 80 Year
  Sex: Male
  Weight: 73.03 kg

DRUGS (4)
  1. SILDENAFIL CITRATE [Suspect]
     Active Substance: SILDENAFIL CITRATE
     Dosage: 100 MG
  2. VIAGRA [Suspect]
     Active Substance: SILDENAFIL CITRATE
     Dosage: 50MG
  3. CIALIS [Suspect]
     Active Substance: TADALAFIL
     Dosage: 20 MG
  4. TADALAFIL [Suspect]
     Active Substance: TADALAFIL
     Dosage: 20 MG

REACTIONS (1)
  - Drug ineffective [Unknown]
